FAERS Safety Report 5265168-6 (Version None)
Quarter: 2007Q1

REPORT INFORMATION
  Report Type: 
  Country: None (occurrence: None)
  Receive Date: 20061213
  Receipt Date: 20050330
  Transmission Date: 20070707
  Serious: No
  Sender: FDA-Public Use
  Company Number: 2005UW04941

PATIENT
  Age: 69 Year
  Sex: Female
  Weight: 85.275 kg

DRUGS (2)
  1. NOLVADEX [Suspect]
     Indication: BREAST CANCER
  2. TOPROL-XL [Concomitant]

REACTIONS (1)
  - CATARACT [None]
